FAERS Safety Report 18642981 (Version 2)
Quarter: 2020Q4

REPORT INFORMATION
  Report Type: Spontaneous
  Country: PT (occurrence: PT)
  Receive Date: 20201221
  Receipt Date: 20201230
  Transmission Date: 20210114
  Serious: Yes (Hospitalization, Disabling, Other)
  Sender: FDA-Public Use
  Company Number: PT-MYLANLABS-2018M1046745

PATIENT
  Age: 17 Year
  Sex: Male

DRUGS (11)
  1. NIMESULIDE [Suspect]
     Active Substance: NIMESULIDE
     Indication: COUGH
     Dosage: UNK
     Route: 065
  2. BILASTINE [Suspect]
     Active Substance: BILASTINE
     Indication: COUGH
     Dosage: UNK
     Route: 065
  3. BILASTINE [Suspect]
     Active Substance: BILASTINE
     Indication: HEADACHE
     Dosage: UNK
     Route: 065
  4. AZITHROMYCIN ANHYDROUS. [Suspect]
     Active Substance: AZITHROMYCIN ANHYDROUS
     Indication: HEADACHE
     Dosage: UNK
     Route: 065
  5. BILASTINE [Suspect]
     Active Substance: BILASTINE
     Indication: HEADACHE
  6. CLARITHROMYCIN. [Suspect]
     Active Substance: CLARITHROMYCIN
     Indication: COUGH
     Dosage: UNK
     Route: 065
  7. AZITHROMYCIN ANHYDROUS. [Suspect]
     Active Substance: AZITHROMYCIN ANHYDROUS
     Indication: COUGH
  8. BRIVUDINE [Suspect]
     Active Substance: BRIVUDINE
     Indication: LIP ULCERATION
     Dosage: UNK
     Route: 065
  9. BILASTINE [Suspect]
     Active Substance: BILASTINE
     Indication: COUGH
  10. NIMESULIDE [Suspect]
     Active Substance: NIMESULIDE
     Indication: HEADACHE
  11. CLARITHROMYCIN. [Suspect]
     Active Substance: CLARITHROMYCIN
     Indication: HEADACHE

REACTIONS (14)
  - Lip oedema [Recovered/Resolved]
  - Coagulopathy [Recovered/Resolved]
  - Rash maculovesicular [Recovered/Resolved]
  - Eye discharge [Recovered/Resolved]
  - Lip erythema [Recovered/Resolved]
  - Pyrexia [Recovered/Resolved]
  - Stevens-Johnson syndrome [Recovered/Resolved]
  - Conjunctival hyperaemia [Recovered/Resolved]
  - Lung infiltration [Recovered/Resolved]
  - Genital ulceration [Recovered/Resolved]
  - Nasal mucosal disorder [Recovered/Resolved]
  - Enanthema [Recovered/Resolved]
  - Rash papular [Recovered/Resolved]
  - Oral mucosa erosion [Recovered/Resolved]
